FAERS Safety Report 14728245 (Version 4)
Quarter: 2018Q2

REPORT INFORMATION
  Report Type: Spontaneous
  Country: US (occurrence: US)
  Receive Date: 20180406
  Receipt Date: 20180618
  Transmission Date: 20180711
  Serious: No
  Sender: FDA-Public Use
  Company Number: US-JNJFOC-20180331278

PATIENT
  Sex: Female
  Weight: 72.58 kg

DRUGS (11)
  1. TURMERIC [Concomitant]
     Active Substance: HERBALS\TURMERIC
     Route: 048
  2. VITAMIN D3 [Concomitant]
     Active Substance: CHOLECALCIFEROL
     Route: 048
  3. XARELTO [Suspect]
     Active Substance: RIVAROXABAN
     Indication: DEEP VEIN THROMBOSIS
     Route: 048
     Dates: start: 20180207, end: 20180507
  4. KEPPRA [Concomitant]
     Active Substance: LEVETIRACETAM
     Indication: SEIZURE
     Route: 065
  5. L METHYLFOLATE [Concomitant]
     Route: 048
  6. XARELTO [Suspect]
     Active Substance: RIVAROXABAN
     Indication: DEEP VEIN THROMBOSIS
     Route: 048
     Dates: start: 20180203, end: 2018
  7. XARELTO [Suspect]
     Active Substance: RIVAROXABAN
     Indication: DEEP VEIN THROMBOSIS
     Route: 048
  8. CEPHALEXINE [Suspect]
     Active Substance: CEPHALEXIN
     Indication: FURUNCLE
     Route: 065
  9. FOLIC ACID. [Concomitant]
     Active Substance: FOLIC ACID
     Route: 048
  10. KEPPRA [Concomitant]
     Active Substance: LEVETIRACETAM
     Indication: SEIZURE
     Route: 065
     Dates: start: 1971
  11. CALCIUM [Concomitant]
     Active Substance: CALCIUM
     Route: 048

REACTIONS (17)
  - Furuncle [Recovered/Resolved]
  - Muscle spasms [Recovered/Resolved]
  - Rash [Recovered/Resolved]
  - Headache [Recovered/Resolved]
  - Weight increased [Not Recovered/Not Resolved]
  - Memory impairment [Recovered/Resolved]
  - Asthenia [Recovered/Resolved]
  - Peripheral swelling [Unknown]
  - Infected dermal cyst [Recovered/Resolved]
  - Fatigue [Recovered/Resolved]
  - Dehydration [Not Recovered/Not Resolved]
  - Hypophagia [Unknown]
  - Erythema [Unknown]
  - Confusional state [Unknown]
  - Decreased appetite [Recovered/Resolved]
  - Hypoaesthesia [Not Recovered/Not Resolved]
  - Skin fragility [Recovered/Resolved]

NARRATIVE: CASE EVENT DATE: 2018
